FAERS Safety Report 24153064 (Version 2)
Quarter: 2024Q3

REPORT INFORMATION
  Report Type: Spontaneous
  Country: US (occurrence: US)
  Receive Date: 20240730
  Receipt Date: 20240807
  Transmission Date: 20241016
  Serious: No
  Sender: FRESENIUS KABI
  Company Number: US-FreseniusKabi-FK202411304

PATIENT
  Age: 29 Year
  Sex: Male
  Weight: 88.7 kg

DRUGS (11)
  1. HEPARIN SODIUM [Suspect]
     Active Substance: HEPARIN SODIUM
     Indication: Jugular vein thrombosis
     Dosage: ROUTE OF ADMINISTRATION: INTRAVENOUS BOLUS?FORM OF ADMINISTRATION: INJECTION?FREQUENCY: ONCE?DOSAGE:
     Dates: start: 20240608
  2. HEPARIN SODIUM [Suspect]
     Active Substance: HEPARIN SODIUM
     Dosage: ROUTE OF ADMINISTRATION: INTRAVENOUS BOLUS?FORM OF ADMINISTRATION: INJECTION?FREQUENCY: ONCE?DOSAGE:
     Dates: start: 20240609
  3. HEPARIN SODIUM [Suspect]
     Active Substance: HEPARIN SODIUM
     Dosage: ROUTE OF ADMINISTRATION: INTRAVENOUS BOLUS?FORM OF ADMINISTRATION: INJECTION?FREQUENCY: ONCE?DOSAGE:
     Dates: start: 20240614
  4. HEPARIN SODIUM\SODIUM CHLORIDE [Suspect]
     Active Substance: HEPARIN SODIUM\SODIUM CHLORIDE
     Indication: Jugular vein thrombosis
     Dosage: FROM 08/JUN/24 AT 09:40 TO 15/JUN/24 AT 15:29?ROUTE OF ADMINISTRATION: INTRAVENOUS?FORM OF ADMINISTR
     Dates: start: 20240608, end: 20240615
  5. CEFTRIAXONE [Concomitant]
     Active Substance: CEFTRIAXONE\CEFTRIAXONE SODIUM
     Indication: Product used for unknown indication
     Dosage: 2G Q24H
  6. BUPROPION HYDROCHLORIDE [Concomitant]
     Active Substance: BUPROPION HYDROCHLORIDE
     Indication: Product used for unknown indication
     Dosage: 200 MG Q12H
  7. METRONIDAZOLE [Concomitant]
     Active Substance: METRONIDAZOLE
     Indication: Product used for unknown indication
     Dosage: 500 MG Q12H
  8. VANCOMYCIN [Concomitant]
     Active Substance: VANCOMYCIN
     Indication: Product used for unknown indication
     Dosage: 1G Q8H
  9. OXALIPLATIN [Concomitant]
     Active Substance: OXALIPLATIN
     Indication: Product used for unknown indication
     Dosage: FOR 1 CYCLE
  10. FLUOROURACIL [Concomitant]
     Active Substance: FLUOROURACIL
     Indication: Product used for unknown indication
     Dosage: FOR 1 CYCLE
  11. DEXAMETHASONE [Concomitant]
     Active Substance: DEXAMETHASONE
     Indication: Product used for unknown indication
     Dosage: FOR 1 CYCLE

REACTIONS (2)
  - Drug ineffective [Unknown]
  - Device related thrombosis [Recovering/Resolving]

NARRATIVE: CASE EVENT DATE: 20240608
